FAERS Safety Report 4318233-1 (Version None)
Quarter: 2004Q1

REPORT INFORMATION
  Report Type: 
  Country: None (occurrence: None)
  Receive Date: 20040315
  Receipt Date: 20040302
  Transmission Date: 20041129
  Serious: Yes (Hospitalization)
  Sender: FDA-Public Use
  Company Number: HQWYE498302MAR04

PATIENT
  Age: 32 Year
  Sex: Female

DRUGS (1)
  1. ANFERTIL (NORGESTREL/ETHINYL ESTRADIOL, TABLET) LOT NO.:  L0135A [Suspect]
     Indication: CONTRACEPTION
     Dosage: 1 TABLET DAILY ORAL
     Route: 048
     Dates: start: 20020101

REACTIONS (2)
  - ARTHRALGIA [None]
  - MONOPLEGIA [None]
